FAERS Safety Report 23256215 (Version 1)
Quarter: 2023Q4

REPORT INFORMATION
  Report Type: Spontaneous
  Country: DE (occurrence: DE)
  Receive Date: 20231204
  Receipt Date: 20231204
  Transmission Date: 20240110
  Serious: Yes (Hospitalization, Other)
  Sender: FDA-Public Use
  Company Number: None

PATIENT
  Age: 72 Year
  Sex: Female
  Weight: 64 kg

DRUGS (6)
  1. ATORVASTATIN [Suspect]
     Active Substance: ATORVASTATIN
     Indication: Cerebrovascular accident
     Route: 048
     Dates: start: 20231012, end: 20231116
  2. ASPIRIN [Concomitant]
     Active Substance: ASPIRIN
     Indication: Product used for unknown indication
     Dosage: 1-0-0
  3. INFLUENZA VIRUS VACCINE QUADRIVALENT TYPE A+B [Concomitant]
     Active Substance: INFLUENZA VIRUS VACCINE QUADRIVALENT TYPE A+B
     Indication: Product used for unknown indication
     Dates: start: 20231108, end: 20231108
  4. MOXONIDINE [Concomitant]
     Active Substance: MOXONIDINE
     Indication: Product used for unknown indication
     Dosage: 0-0-1
  5. LERCANIDIPINE [Concomitant]
     Active Substance: LERCANIDIPINE
     Indication: Product used for unknown indication
     Dosage: 0,5-0-0,5
  6. Ifirmasta 300 mg Film coated tablet [Concomitant]
     Indication: Product used for unknown indication
     Dosage: 1-0-0

REACTIONS (8)
  - Blood bilirubin increased [Not Recovered/Not Resolved]
  - Transaminases increased [Not Recovered/Not Resolved]
  - Hepatic failure [Not Recovered/Not Resolved]
  - Urinary bladder haemorrhage [Unknown]
  - Dehydration [Unknown]
  - Jaundice [Unknown]
  - Weight decreased [Unknown]
  - General physical health deterioration [Unknown]

NARRATIVE: CASE EVENT DATE: 20231101
